FAERS Safety Report 8918638 (Version 1)
Quarter: 2012Q4

REPORT INFORMATION
  Report Type: 
  Country: US (occurrence: US)
  Receive Date: 20121120
  Receipt Date: 20121120
  Transmission Date: 20130627
  Serious: Yes (Other)
  Sender: FDA-Public Use
  Company Number: US-ASTRAZENECA-2012SE16876

PATIENT
  Sex: Female

DRUGS (1)
  1. NEXIUM [Suspect]
     Route: 048

REACTIONS (7)
  - Hypertension [Unknown]
  - Osteoporosis [Unknown]
  - Osteopenia [Unknown]
  - Bone disorder [Unknown]
  - Body height decreased [Unknown]
  - Tinnitus [Unknown]
  - Vertigo [Unknown]
